FAERS Safety Report 15446860 (Version 1)
Quarter: 2018Q3

REPORT INFORMATION
  Report Type: Spontaneous
  Country: IN (occurrence: IN)
  Receive Date: 20180928
  Receipt Date: 20180928
  Transmission Date: 20181010
  Serious: No
  Sender: FDA-Public Use
  Company Number: IN-MEDICURE INC.-2055490

PATIENT
  Age: 26 Year
  Sex: Female

DRUGS (5)
  1. TICAGRELOR. [Concomitant]
     Active Substance: TICAGRELOR
  2. ZOTAROLIMUS [Concomitant]
     Active Substance: ZOTAROLIMUS
     Route: 013
  3. AGGRASTAT [Suspect]
     Active Substance: TIROFIBAN HYDROCHLORIDE
  4. ASPIRIN. [Concomitant]
     Active Substance: ASPIRIN
  5. ROSUVASTATIN. [Concomitant]
     Active Substance: ROSUVASTATIN

REACTIONS (1)
  - Exposure during pregnancy [Recovered/Resolved]
